FAERS Safety Report 4932467-4 (Version None)
Quarter: 2006Q1

REPORT INFORMATION
  Report Type: 
  Country: None (occurrence: None)
  Receive Date: 20060301
  Receipt Date: 20060221
  Transmission Date: 20060701
  Serious: Yes (Hospitalization)
  Sender: FDA-Public Use
  Company Number: 2006P1000102

PATIENT
  Age: 77 Year
  Sex: Female
  Weight: 52 kg

DRUGS (13)
  1. RETEPLASE (RETEPLASE) [Suspect]
     Indication: ACUTE MYOCARDIAL INFARCTION
     Dosage: IV
     Route: 042
     Dates: start: 20051217
  2. ABCIXIMAB (ABCIXIMAB) [Suspect]
     Indication: ACUTE MYOCARDIAL INFARCTION
     Dosage: IV
     Route: 042
     Dates: start: 20051217
  3. RANITIDINE [Concomitant]
  4. SIMVASTATIN [Concomitant]
  5. PERINDOPRIL [Concomitant]
  6. ENOXAPARIN SODIUM [Concomitant]
  7. ASPIRIN [Concomitant]
  8. ISOSORBIDE MONONITRATE [Concomitant]
  9. BISOPRODOL [Concomitant]
  10. CARVEDILOL [Concomitant]
  11. FUROSEMIDE [Concomitant]
  12. TICLOPIDINE HCL [Concomitant]
  13. AMIODARONE [Concomitant]

REACTIONS (2)
  - CHEST X-RAY ABNORMAL [None]
  - PNEUMONIA [None]
